FAERS Safety Report 20863186 (Version 2)
Quarter: 2022Q2

REPORT INFORMATION
  Report Type: Spontaneous
  Country: FR (occurrence: FR)
  Receive Date: 20220523
  Receipt Date: 20220531
  Transmission Date: 20220721
  Serious: Yes (Death, Other)
  Sender: FDA-Public Use
  Company Number: None

PATIENT
  Age: 58 Year
  Sex: Female
  Weight: 62 kg

DRUGS (5)
  1. VENLAFAXINE HCL [Suspect]
     Active Substance: VENLAFAXINE HYDROCHLORIDE
     Indication: Mixed anxiety and depressive disorder
     Dosage: 75 MG, DAILY
     Route: 048
     Dates: start: 20220406, end: 20220412
  2. VENLAFAXINE HCL [Suspect]
     Active Substance: VENLAFAXINE HYDROCHLORIDE
     Dosage: 75 MG, 2X/DAY
     Route: 048
     Dates: start: 20220413
  3. OLANZAPINE [Suspect]
     Active Substance: OLANZAPINE
     Indication: Mixed anxiety and depressive disorder
     Dosage: 7.5 MG
     Route: 048
     Dates: start: 20220406
  4. DIAZEPAM [Suspect]
     Active Substance: DIAZEPAM
     Indication: Mixed anxiety and depressive disorder
     Dosage: 10 MG, 4X/DAY
     Route: 048
     Dates: start: 20220406
  5. ZOPICLONE [Suspect]
     Active Substance: ZOPICLONE
     Indication: Mixed anxiety and depressive disorder
     Dosage: 7.5 MG
     Route: 048
     Dates: start: 20220407

REACTIONS (2)
  - Completed suicide [Fatal]
  - Off label use [Unknown]

NARRATIVE: CASE EVENT DATE: 20220413
